FAERS Safety Report 8013269-1 (Version None)
Quarter: 2011Q4

REPORT INFORMATION
  Report Type: 
  Country: None (occurrence: None)
  Receive Date: 20111223
  Receipt Date: 20111208
  Transmission Date: 20120403
  Serious: Yes (Death)
  Sender: FDA-Public Use
  Company Number: 2011-000065

PATIENT

DRUGS (1)
  1. ACTONEL [Suspect]
     Dosage: 5 MG,, ORAL
     Route: 048

REACTIONS (1)
  - DEATH [None]
